FAERS Safety Report 22020539 (Version 1)
Quarter: 2023Q1

REPORT INFORMATION
  Report Type: Spontaneous
  Country: CN (occurrence: CN)
  Receive Date: 20230222
  Receipt Date: 20230222
  Transmission Date: 20230417
  Serious: Yes (Other)
  Sender: FDA-Public Use
  Company Number: CN-002147023-NVSC2022CN167140

PATIENT
  Age: 62 Year
  Sex: Female
  Weight: 50 kg

DRUGS (1)
  1. DEXAMETHASONE\TOBRAMYCIN [Suspect]
     Active Substance: DEXAMETHASONE\TOBRAMYCIN
     Indication: Postoperative care
     Dosage: 1 DRP, QID
     Route: 047
     Dates: start: 20220403, end: 20220419

REACTIONS (2)
  - Corneal infection [Unknown]
  - Foreign body sensation in eyes [Recovered/Resolved]

NARRATIVE: CASE EVENT DATE: 20220419
